FAERS Safety Report 5674611-X (Version None)
Quarter: 2008Q1

REPORT INFORMATION
  Report Type: 
  Country: None (occurrence: None)
  Receive Date: 20080320
  Receipt Date: 20080311
  Transmission Date: 20080703
  Serious: Yes (Life-Threatening, Hospitalization)
  Sender: FDA-Public Use
  Company Number: CA-JNJFOC-20080302798

PATIENT
  Age: 5 Decade

DRUGS (1)
  1. TRAMACET [Suspect]
     Indication: PAIN
     Route: 048

REACTIONS (3)
  - DELIRIUM [None]
  - RENAL FAILURE [None]
  - SEROTONIN SYNDROME [None]
